FAERS Safety Report 7171061 (Version 2)
Quarter: 2014Q3

REPORT INFORMATION
  Report Type: Spontaneous
  Country: IL (occurrence: IL)
  Receive Date: 20091109
  Receipt Date: 20140721
  Transmission Date: 20150326
  Serious: Yes (Hospitalization, Other)
  Sender: FDA-Public Use
  Company Number: IL-ELI_LILLY_AND_COMPANY-IL200910007558

PATIENT
  Age: 67 Year
  Sex: Female

DRUGS (1)
  1. GEMZAR [Suspect]
     Active Substance: GEMCITABINE HYDROCHLORIDE
     Indication: INVASIVE DUCTAL BREAST CARCINOMA
     Dosage: 1000 MG/M2, DAY 1 AND 8 OF 21 DAY CYCLE
     Route: 042

REACTIONS (5)
  - Rales [Unknown]
  - Thrombocytopenia [Unknown]
  - Supraventricular tachycardia [Recovered/Resolved]
  - Leukopenia [Unknown]
  - Hepatosplenomegaly [Unknown]
